FAERS Safety Report 7537322-1 (Version None)
Quarter: 2011Q2

REPORT INFORMATION
  Report Type: 
  Country: None (occurrence: None)
  Receive Date: 20110609
  Receipt Date: 20110603
  Transmission Date: 20111010
  Serious: Yes (Other)
  Sender: FDA-Public Use
  Company Number: US-PFIZER INC-2011054509

PATIENT
  Sex: Male
  Weight: 71.67 kg

DRUGS (3)
  1. EFFEXOR XR [Suspect]
     Dosage: 150 MG DAILY
  2. SEROQUEL [Suspect]
     Indication: DEPRESSION
     Dosage: 100MG DAILY
  3. BYSTOLIC [Suspect]
     Indication: HYPERTENSION
     Dosage: 5MG DAILY

REACTIONS (1)
  - SUICIDE ATTEMPT [None]
